FAERS Safety Report 15770102 (Version 2)
Quarter: 2019Q1

REPORT INFORMATION
  Report Type: Spontaneous
  Country: US (occurrence: US)
  Receive Date: 20181228
  Receipt Date: 20190107
  Transmission Date: 20190417
  Serious: No
  Sender: FDA-Public Use
  Company Number: US-PFIZER INC-2018532801

PATIENT
  Age: 16 Year
  Sex: Male

DRUGS (1)
  1. GENOTROPIN [Suspect]
     Active Substance: SOMATROPIN
     Dosage: 2.4 MG, UNK (6 DAYS A WEEK)

REACTIONS (2)
  - Insulin-like growth factor increased [Unknown]
  - Bone density increased [Unknown]

NARRATIVE: CASE EVENT DATE: 20181130
